FAERS Safety Report 15364555 (Version 2)
Quarter: 2018Q3

REPORT INFORMATION
  Report Type: Spontaneous
  Country: US (occurrence: US)
  Receive Date: 20180909
  Receipt Date: 20180914
  Transmission Date: 20181010
  Serious: No
  Sender: FDA-Public Use
  Company Number: US-CELGENEUS-USA-20180900703

PATIENT
  Age: 40 Year
  Sex: Male

DRUGS (1)
  1. OTEZLA [Suspect]
     Active Substance: APREMILAST
     Indication: PSORIASIS
     Dosage: 60 MILLIGRAM
     Route: 048
     Dates: start: 201806, end: 20180905

REACTIONS (5)
  - Cellulitis [Unknown]
  - Headache [Unknown]
  - Rash [Unknown]
  - Diarrhoea [Recovered/Resolved]
  - Gout [Unknown]

NARRATIVE: CASE EVENT DATE: 201806
